FAERS Safety Report 8292514-1 (Version None)
Quarter: 2012Q2

REPORT INFORMATION
  Report Type: 
  Country: None (occurrence: None)
  Receive Date: 20120417
  Receipt Date: 20111115
  Transmission Date: 20120825
  Serious: No
  Sender: FDA-Public Use
  Company Number: GB-ASTRAZENECA-2011SE48688

PATIENT
  Age: 66 Year
  Sex: Female

DRUGS (13)
  1. NEXIUM [Suspect]
     Route: 048
  2. SEROQUEL XR [Suspect]
     Indication: DEPRESSION
     Route: 048
  3. KLOR-CON [Concomitant]
  4. NEXIUM [Suspect]
     Indication: GASTROOESOPHAGEAL REFLUX DISEASE
     Route: 048
  5. HYDROCODON ACETAMINOPHN [Concomitant]
  6. ALPRAZOLAM [Concomitant]
  7. VENLAFAXINE HCL [Concomitant]
  8. FENTANYL [Concomitant]
  9. TRIAMTERENE AND HYDROCHLOROTHIAZIDE [Concomitant]
  10. CLONAZEPAM [Concomitant]
  11. FUROSEMIDE [Concomitant]
  12. SEROQUEL XR [Suspect]
     Route: 048
  13. CYMBALTA [Concomitant]

REACTIONS (10)
  - SWELLING [None]
  - SLEEP DISORDER DUE TO A GENERAL MEDICAL CONDITION [None]
  - INSOMNIA [None]
  - INAPPROPRIATE SCHEDULE OF DRUG ADMINISTRATION [None]
  - DRUG DOSE OMISSION [None]
  - REGURGITATION [None]
  - DYSPEPSIA [None]
  - ERUCTATION [None]
  - CHEST PAIN [None]
  - THINKING ABNORMAL [None]
